FAERS Safety Report 25973396 (Version 1)
Quarter: 2025Q4

REPORT INFORMATION
  Report Type: Spontaneous
  Country: US (occurrence: US)
  Receive Date: 20251029
  Receipt Date: 20251029
  Transmission Date: 20260117
  Serious: No
  Sender: Haleon PLC
  Company Number: US-HALEON-2270396

PATIENT

DRUGS (1)
  1. THERAFLU-D FLU RELIEF MAX STRENGTH PLUS NASAL DECONGESTANT [Suspect]
     Active Substance: ACETAMINOPHEN\DEXTROMETHORPHAN HYDROBROMIDE\PSEUDOEPHEDRINE HYDROCHLORIDE
     Indication: Oropharyngeal pain

REACTIONS (1)
  - Therapeutic product effect incomplete [Unknown]
